FAERS Safety Report 8419664-0 (Version None)
Quarter: 2012Q2

REPORT INFORMATION
  Report Type: 
  Country: None (occurrence: None)
  Receive Date: 20120604
  Receipt Date: 20120604
  Transmission Date: 20120825
  Serious: Yes (Hospitalization, Other)
  Sender: FDA-Public Use
  Company Number: None

PATIENT
  Sex: Female
  Weight: 103.4201 kg

DRUGS (3)
  1. FLOGYL [Concomitant]
  2. ANTIBODIC [Concomitant]
  3. WARFARIN SODIUM [Suspect]
     Indication: ATRIAL FIBRILLATION
     Dosage: 5 MG 2 TIMES A DAY PO
     Route: 048
     Dates: start: 20120521, end: 20120529

REACTIONS (3)
  - GASTRITIS [None]
  - HAEMORRHAGE [None]
  - DIVERTICULITIS [None]
